FAERS Safety Report 9626753 (Version 4)
Quarter: 2013Q4

REPORT INFORMATION
  Report Type: Report from Study
  Country: US (occurrence: US)
  Receive Date: 20131016
  Receipt Date: 20131223
  Transmission Date: 20140711
  Serious: Yes (Hospitalization, Other)
  Sender: FDA-Public Use
  Company Number: US-JNJFOC-20131005244

PATIENT
  Age: 52 Year
  Sex: Female
  Weight: 80.29 kg

DRUGS (21)
  1. REMICADE [Suspect]
     Indication: RHEUMATOID ARTHRITIS
     Dosage: FIRST LOADING DOSE??3 VIALS
     Route: 042
     Dates: start: 20130429, end: 20130429
  2. REMICADE [Suspect]
     Indication: RHEUMATOID ARTHRITIS
     Dosage: RESTARTED
     Route: 042
     Dates: start: 20131010
  3. REMICADE [Suspect]
     Indication: RHEUMATOID ARTHRITIS
     Route: 042
     Dates: start: 20131023
  4. REMICADE [Suspect]
     Indication: RHEUMATOID ARTHRITIS
     Route: 042
     Dates: start: 20131204
  5. LEFLUNOMIDE [Concomitant]
     Indication: RHEUMATOID ARTHRITIS
     Route: 065
     Dates: start: 201301
  6. PREDNISONE [Concomitant]
     Indication: RHEUMATOID ARTHRITIS
     Route: 048
     Dates: start: 201201
  7. ZETIA [Concomitant]
     Indication: BLOOD CHOLESTEROL INCREASED
     Route: 048
     Dates: start: 2000
  8. SERTRALINE [Concomitant]
     Indication: ANXIETY
     Route: 065
     Dates: start: 1996
  9. ENBREL [Concomitant]
     Indication: RHEUMATOID ARTHRITIS
     Route: 065
     Dates: start: 201201
  10. LEVOTHYROXINE [Concomitant]
     Indication: HYPOTHYROIDISM
     Route: 065
     Dates: start: 201107
  11. FLECAINIDE ACETATE [Concomitant]
     Indication: SUPRAVENTRICULAR TACHYCARDIA
     Route: 048
     Dates: start: 2000
  12. LEVOXYL [Concomitant]
     Route: 048
  13. ZANAFLEX [Concomitant]
     Dosage: EVERY EVENING
     Route: 048
  14. HYDROCODONE 5/ACETAMINOPHEN 500 [Concomitant]
     Indication: PAIN
     Route: 048
  15. LANSOPRAZOLE [Concomitant]
     Dosage: BEFORE MEAL
     Route: 048
  16. LYRICA [Concomitant]
     Route: 048
  17. ZOLOFT [Concomitant]
     Route: 048
  18. ZOLOFT [Concomitant]
     Route: 048
  19. TOPROL [Concomitant]
     Route: 048
  20. COUMADIN [Concomitant]
     Route: 048
  21. RECLAST [Concomitant]
     Dosage: 5MG/100 ML
     Route: 042

REACTIONS (3)
  - Herpes zoster [Recovered/Resolved]
  - Deep vein thrombosis [Recovered/Resolved]
  - Deep vein thrombosis [Recovered/Resolved]
